FAERS Safety Report 15183366 (Version 1)
Quarter: 2018Q3

REPORT INFORMATION
  Report Type: Spontaneous
  Country: US (occurrence: US)
  Receive Date: 20180625
  Receipt Date: 20180625
  Transmission Date: 20181010
  Serious: Yes (Hospitalization, Disabling)
  Sender: FDA-Public Use
  Company Number: None

PATIENT
  Age: 51 Year
  Sex: Male
  Weight: 103.5 kg

DRUGS (1)
  1. AVELOX [Suspect]
     Active Substance: MOXIFLOXACIN HYDROCHLORIDE
     Indication: LOWER RESPIRATORY TRACT INFECTION
     Dates: start: 20090615, end: 20090616

REACTIONS (14)
  - Ill-defined disorder [None]
  - Gait disturbance [None]
  - Dyspnoea [None]
  - Fatigue [None]
  - Diarrhoea [None]
  - Arthralgia [None]
  - Tendon disorder [None]
  - Pallor [None]
  - Insomnia [None]
  - Hepatic enzyme abnormal [None]
  - Nausea [None]
  - Depressed level of consciousness [None]
  - Abdominal pain upper [None]
  - Dizziness [None]

NARRATIVE: CASE EVENT DATE: 20090615
